FAERS Safety Report 4532436-2 (Version None)
Quarter: 2004Q4

REPORT INFORMATION
  Report Type: 
  Country: None (occurrence: None)
  Receive Date: 20041217
  Receipt Date: 20041206
  Transmission Date: 20050328
  Serious: Yes (Hospitalization, Disabling, Other)
  Sender: FDA-Public Use
  Company Number: 2004-00453

PATIENT
  Age: 53 Year
  Sex: Male
  Weight: 169.2 kg

DRUGS (4)
  1. VELCADE [Suspect]
     Indication: MULTIPLE MYELOMA
     Dosage: 2.3 MG BIW, IV BOLUS
     Route: 040
     Dates: start: 20040719, end: 20040819
  2. OXYCONTIN (OXYCODONNE HYDROCHLORIDE) [Concomitant]
  3. NEURONTIN [Concomitant]
  4. VIOXX [Concomitant]

REACTIONS (3)
  - ATAXIA [None]
  - DYSKINESIA [None]
  - MYOCLONUS [None]
